FAERS Safety Report 5162882-8 (Version None)
Quarter: 2006Q4

REPORT INFORMATION
  Report Type: 
  Country: None (occurrence: None)
  Receive Date: 20061201
  Receipt Date: 20061121
  Transmission Date: 20070319
  Serious: Yes (Hospitalization)
  Sender: FDA-Public Use
  Company Number: 2006PK02445

PATIENT
  Age: 16579 Day
  Sex: Female
  Weight: 61 kg

DRUGS (2)
  1. ARIMIDEX [Suspect]
     Indication: BREAST CANCER
     Route: 048
     Dates: start: 20020410, end: 20050425
  2. ZOLADEX [Concomitant]
     Indication: BREAST CANCER
     Route: 058
     Dates: start: 20020410, end: 20050425

REACTIONS (2)
  - ENDOMETRIAL HYPERPLASIA [None]
  - UTERINE POLYP [None]
